FAERS Safety Report 9929177 (Version 1)
Quarter: 2014Q1

REPORT INFORMATION
  Report Type: Spontaneous
  Country: US (occurrence: US)
  Receive Date: 20140227
  Receipt Date: 20140227
  Transmission Date: 20141002
  Serious: No
  Sender: FDA-Public Use
  Company Number: US-GE HEALTHCARE MEDICAL DIAGNOSTICS-OMPQ-PR-1402S-0175

PATIENT
  Age: 74 Year
  Sex: Male

DRUGS (7)
  1. OMNIPAQUE [Suspect]
     Indication: HAEMATURIA
     Route: 042
     Dates: start: 20140220, end: 20140220
  2. OMNIPAQUE [Suspect]
     Indication: DIAGNOSTIC PROCEDURE
  3. AMBIEN [Concomitant]
  4. LIPITOR [Concomitant]
  5. CIPRO [Concomitant]
  6. PROSCAR [Concomitant]
  7. CARDURA [Concomitant]

REACTIONS (2)
  - Pruritus [Unknown]
  - Eye irritation [Unknown]
